FAERS Safety Report 13428659 (Version 1)
Quarter: 2017Q2

REPORT INFORMATION
  Report Type: Other
  Country: IT (occurrence: IT)
  Receive Date: 20170411
  Receipt Date: 20170411
  Transmission Date: 20170830
  Serious: Yes (Death, Other)
  Sender: FDA-Public Use
  Company Number: IT-B. BRAUN MEDICAL INC.-1065284

PATIENT
  Age: 86 Year
  Sex: Male

DRUGS (8)
  1. FLUCONAZOLE. [Suspect]
     Active Substance: FLUCONAZOLE
  2. METRONIDAZOLE. [Suspect]
     Active Substance: METRONIDAZOLE
     Indication: KLEBSIELLA INFECTION
     Route: 042
  3. PIPERACILLIN AND TAZOBACTAM [Suspect]
     Active Substance: PIPERACILLIN SODIUM\TAZOBACTAM SODIUM
     Route: 042
  4. CIPROFLOXACIN. [Suspect]
     Active Substance: CIPROFLOXACIN
  5. COLISTIN [Suspect]
     Active Substance: COLISTIN
  6. CLINDAMYCIN. [Suspect]
     Active Substance: CLINDAMYCIN
  7. MEROPENEM. [Suspect]
     Active Substance: MEROPENEM
  8. TIGECYCLINE. [Suspect]
     Active Substance: TIGECYCLINE
     Route: 042

REACTIONS (1)
  - Staphylococcal infection [Fatal]
